FAERS Safety Report 4500584-9 (Version None)
Quarter: 2004Q4

REPORT INFORMATION
  Report Type: 
  Country: None (occurrence: None)
  Receive Date: 20041110
  Receipt Date: 20041011
  Transmission Date: 20050328
  Serious: Yes (Death, Hospitalization)
  Sender: FDA-Public Use
  Company Number: P03200400099

PATIENT
  Age: 58 Year
  Sex: Male
  Weight: 86.637 kg

DRUGS (18)
  1. ELOXATIN [Suspect]
     Indication: PANCREATIC CARCINOMA
     Dosage: 130 MG/M2 Q3W - INTRAVENOUS NOS
     Route: 042
     Dates: start: 20040915, end: 20040915
  2. CAPECITABINE - 2000 MG/M2 [Suspect]
     Indication: PANCREATIC CARCINOMA
     Dosage: ^2000 MG/M2 TAKEN AS 2 DIVIDED DOSES DAILY FOR 14 DAYS^ - ORAL
     Route: 048
     Dates: start: 20040915, end: 20040929
  3. MORPHINE SULFATE [Concomitant]
  4. METHYLPHENIDATE HCL [Concomitant]
  5. HEPARIN-FRACTION, SODIUM SALT [Concomitant]
  6. LORATADINE [Concomitant]
  7. FLUTICASONE/SALMETEROL [Concomitant]
  8. BUDESONIDE [Concomitant]
  9. DOCUSATE SODIUM [Concomitant]
  10. SENNA [Concomitant]
  11. NAPROXEN SODIUM [Concomitant]
  12. VITAMINS NOS [Concomitant]
  13. EPOGEN [Concomitant]
  14. LORAZEPAM [Concomitant]
  15. FENTANYL [Concomitant]
  16. LACTULOSE [Concomitant]
  17. NYSTATIN [Concomitant]
  18. LANSOPRAZOLE [Concomitant]

REACTIONS (10)
  - ASTERIXIS [None]
  - DEHYDRATION [None]
  - EFFUSION [None]
  - ENCEPHALOPATHY [None]
  - HEPATIC FAILURE [None]
  - LUNG NEOPLASM [None]
  - MALIGNANT NEOPLASM PROGRESSION [None]
  - METASTASES TO LIVER [None]
  - METASTATIC NEOPLASM [None]
  - TACHYCARDIA [None]
